FAERS Safety Report 24763819 (Version 1)
Quarter: 2024Q4

REPORT INFORMATION
  Report Type: Spontaneous
  Country: GB (occurrence: GB)
  Receive Date: 20241223
  Receipt Date: 20241223
  Transmission Date: 20250114
  Serious: Yes (Other)
  Sender: AUROBINDO
  Company Number: GB-MHRA-MED-202412101845403710-BYHKP

PATIENT
  Age: 58 Year
  Sex: Female
  Weight: 81 kg

DRUGS (2)
  1. CLARITHROMYCIN [Suspect]
     Active Substance: CLARITHROMYCIN
     Indication: Toothache
     Dosage: 500 MILLIGRAM, TWO TIMES A DAY
     Route: 065
     Dates: start: 20241205
  2. PREGABALIN [Concomitant]
     Active Substance: PREGABALIN
     Indication: Fibromyalgia
     Dosage: UNK
     Route: 065
     Dates: start: 20130508

REACTIONS (1)
  - Necrotising ulcerative gingivostomatitis [Not Recovered/Not Resolved]

NARRATIVE: CASE EVENT DATE: 20241210
